FAERS Safety Report 8771513 (Version 1)
Quarter: 2012Q4

REPORT INFORMATION
  Report Type: 
  Country: BR (occurrence: BR)
  Receive Date: 20120906
  Receipt Date: 20120906
  Transmission Date: 20130627
  Serious: Yes (Death, Hospitalization)
  Sender: FDA-Public Use
  Company Number: BR-B.I. PHARMACEUTICALS,INC./RIDGEFIELD-2012-BR-00984BR

PATIENT
  Age: 67 Year
  Sex: Male
  Weight: 42 kg

DRUGS (4)
  1. SPIRIVA RESPIMAT [Suspect]
     Indication: CHRONIC OBSTRUCTIVE PULMONARY DISEASE
     Dosage: 1 puf
     Route: 055
     Dates: start: 20120608, end: 20120614
  2. CITALOPRAM [Concomitant]
     Indication: DEPRESSION
     Dates: end: 20120617
  3. RIVOTRIL [Concomitant]
     Indication: DEPRESSION
     Dates: end: 20120617
  4. MENELAT [Concomitant]
     Indication: DEPRESSION
     Dates: end: 20120617

REACTIONS (1)
  - Chronic obstructive pulmonary disease [Fatal]
